FAERS Safety Report 9437518 (Version 1)
Quarter: 2013Q3

REPORT INFORMATION
  Report Type: Spontaneous
  Country: US (occurrence: US)
  Receive Date: 20130802
  Receipt Date: 20130802
  Transmission Date: 20140515
  Serious: No
  Sender: FDA-Public Use
  Company Number: US-PFIZER INC-2013223113

PATIENT
  Age: 70 Year
  Sex: Male

DRUGS (1)
  1. LIPITOR [Suspect]
     Indication: HYPERCHOLESTEROLAEMIA
     Dosage: 1 DF, 1X/DAY
     Route: 048
     Dates: start: 2004, end: 2007

REACTIONS (2)
  - Influenza like illness [Recovered/Resolved]
  - Myalgia [Recovered/Resolved]
